FAERS Safety Report 9602055 (Version 3)
Quarter: 2016Q2

REPORT INFORMATION
  Report Type: Spontaneous
  Country: JP (occurrence: JP)
  Receive Date: 20131007
  Receipt Date: 20160602
  Transmission Date: 20160815
  Serious: Yes (Death)
  Sender: FDA-Public Use
  Company Number: PHHY2013JP111244

PATIENT
  Age: 56 Year
  Sex: Male

DRUGS (1)
  1. EXJADE [Suspect]
     Active Substance: DEFERASIROX
     Indication: ADULT T-CELL LYMPHOMA/LEUKAEMIA
     Dosage: 500 MG, QD (DAILY)
     Route: 048
     Dates: start: 20130820

REACTIONS (3)
  - Gastric cancer [Fatal]
  - Disease progression [Fatal]
  - Adult T-cell lymphoma/leukaemia [Fatal]
